FAERS Safety Report 20701574 (Version 1)
Quarter: 2022Q2

REPORT INFORMATION
  Report Type: Spontaneous
  Country: US (occurrence: None)
  Receive Date: 20220411
  Receipt Date: 20220411
  Transmission Date: 20220721
  Serious: Yes (Other)
  Sender: FDA-Public Use
  Company Number: None

PATIENT
  Age: 72 Year
  Sex: Female

DRUGS (2)
  1. READI-CAT [Suspect]
     Active Substance: BARIUM SULFATE
  2. iohexol 240 mg/ml [Concomitant]
     Dates: start: 20220328

REACTIONS (3)
  - Contrast media reaction [None]
  - Chest discomfort [None]
  - Erythema [None]

NARRATIVE: CASE EVENT DATE: 20220328
